FAERS Safety Report 21096876 (Version 1)
Quarter: 2022Q3

REPORT INFORMATION
  Report Type: Report from Study
  Country: US (occurrence: US)
  Receive Date: 20220718
  Receipt Date: 20220718
  Transmission Date: 20221026
  Serious: Yes (Hospitalization)
  Sender: FDA-Public Use
  Company Number: US-BRISTOL-MYERS SQUIBB COMPANY-BMS-2022-040211

PATIENT
  Age: 68 Year
  Sex: Male
  Weight: 75 kg

DRUGS (5)
  1. IPILIMUMAB [Suspect]
     Active Substance: IPILIMUMAB
     Indication: Renal cell carcinoma
     Dosage: 4 DOSES
     Route: 065
     Dates: start: 20201029, end: 20211229
  2. CABOZANTINIB [Suspect]
     Active Substance: CABOZANTINIB
     Indication: Renal cell carcinoma
     Route: 048
  3. TIVOZANIB [Concomitant]
     Active Substance: TIVOZANIB
     Indication: Product used for unknown indication
     Dosage: UNK
     Route: 048
     Dates: start: 20220107
  4. LENVATINIB [Concomitant]
     Active Substance: LENVATINIB
     Indication: Product used for unknown indication
     Dosage: UNK
     Route: 065
     Dates: start: 20220209
  5. EVEROLIMUS [Concomitant]
     Active Substance: EVEROLIMUS
     Indication: Product used for unknown indication
     Dosage: UNK
     Route: 065
     Dates: start: 20220209

REACTIONS (1)
  - Asthenia [Not Recovered/Not Resolved]

NARRATIVE: CASE EVENT DATE: 20220308
